FAERS Safety Report 26115594 (Version 1)
Quarter: 2025Q4

REPORT INFORMATION
  Report Type: Spontaneous
  Country: US (occurrence: US)
  Receive Date: 20251203
  Receipt Date: 20251203
  Transmission Date: 20260117
  Serious: No
  Sender: PL DEVELOPMENTS
  Company Number: US-P+L Devolo-2189691

PATIENT
  Age: 71 Year
  Sex: Female

DRUGS (3)
  1. OMEPRAZOLE MAGNESIUM [Suspect]
     Active Substance: OMEPRAZOLE MAGNESIUM
     Indication: Gastrooesophageal reflux disease
     Dates: start: 2025
  2. OMEPRAZOLE MAGNESIUM [Suspect]
     Active Substance: OMEPRAZOLE MAGNESIUM
     Indication: Faecal volume increased
  3. Metamucil Psyllium [Concomitant]
     Dates: start: 2019

REACTIONS (1)
  - Product use in unapproved indication [Unknown]

NARRATIVE: CASE EVENT DATE: 20250101
